FAERS Safety Report 10703492 (Version 1)
Quarter: 2015Q1

REPORT INFORMATION
  Report Type: Spontaneous
  Country: US (occurrence: US)
  Receive Date: 20150112
  Receipt Date: 20150112
  Transmission Date: 20150721
  Serious: Yes (Hospitalization)
  Sender: FDA-Public Use
  Company Number: US-TEVA-533100USA

PATIENT
  Age: 23 Year
  Sex: Female

DRUGS (3)
  1. TRAMADOL [Suspect]
     Active Substance: TRAMADOL
     Indication: BACK PAIN
     Dosage: 1.5G
     Route: 048
  2. NAPROXEN. [Suspect]
     Active Substance: NAPROXEN
     Indication: BACK PAIN
     Dosage: UNKNOWN QUANTITY
     Route: 048
  3. METAXALONE. [Suspect]
     Active Substance: METAXALONE
     Indication: BACK PAIN
     Dosage: 12G
     Route: 048

REACTIONS (4)
  - Serotonin syndrome [Recovering/Resolving]
  - Status epilepticus [Recovering/Resolving]
  - Overdose [Recovering/Resolving]
  - Suicidal behaviour [Recovering/Resolving]
